FAERS Safety Report 9670859 (Version 2)
Quarter: 2013Q4

REPORT INFORMATION
  Report Type: Report from Study
  Country: US (occurrence: US)
  Receive Date: 20131106
  Receipt Date: 20131106
  Transmission Date: 20140711
  Serious: Yes (Hospitalization, Other)
  Sender: FDA-Public Use
  Company Number: PHEH2013US019094

PATIENT
  Sex: Female

DRUGS (1)
  1. ZOMETA [Suspect]
     Indication: OSTEOPOROSIS
     Dosage: 3 MG, ONCE EVERY 6 MONTHS
     Route: 042
     Dates: start: 20090708

REACTIONS (9)
  - Cholecystitis [Unknown]
  - Hepatic cirrhosis [Unknown]
  - Ankle fracture [Unknown]
  - Fall [Recovering/Resolving]
  - Forearm fracture [Recovering/Resolving]
  - Mass [Unknown]
  - Local swelling [Unknown]
  - Blood pressure systolic increased [Unknown]
  - Asthenia [Unknown]
